FAERS Safety Report 8817067 (Version 1)
Quarter: 2012Q4

REPORT INFORMATION
  Report Type: Spontaneous
  Country: US (occurrence: None)
  Receive Date: 20121003
  Receipt Date: 20121003
  Transmission Date: 20130627
  Serious: Yes (Other)
  Sender: FDA-Public Use
  Company Number: None

PATIENT
  Age: 86 Year
  Sex: Female

DRUGS (1)
  1. FORTEO 20MCG LILLY [Suspect]
     Indication: OSTEOPOROSIS
     Route: 058
     Dates: start: 20120502, end: 20120926

REACTIONS (1)
  - Heart rate irregular [None]
